FAERS Safety Report 9685575 (Version 1)
Quarter: 2013Q4

REPORT INFORMATION
  Report Type: Spontaneous
  Country: US (occurrence: US)
  Receive Date: 20131113
  Receipt Date: 20131113
  Transmission Date: 20140711
  Serious: No
  Sender: FDA-Public Use
  Company Number: US-ENDO PHARMACEUTICALS INC.-HYDX20120003

PATIENT
  Sex: Male

DRUGS (4)
  1. HYDROXYZINE HYDROCHLORIDE TABLETS 50MG [Suspect]
     Indication: URTICARIA
     Dosage: UNKNOWN
     Route: 048
     Dates: start: 201206
  2. ALLEGRA 24 HOUR [Suspect]
     Indication: URTICARIA
     Route: 048
     Dates: start: 201206
  3. AMLODIPINE BESYLATE TABLETS [Concomitant]
     Indication: PRODUCT USED FOR UNKNOWN INDICATION
     Dosage: UNKNOWN
     Route: 048
     Dates: start: 2012
  4. LISINOPRIL TABLETS [Concomitant]
     Indication: HYPERTENSION
     Dosage: UNKNOWN
     Route: 048
     Dates: start: 1992, end: 2012

REACTIONS (1)
  - Somnolence [Not Recovered/Not Resolved]
